FAERS Safety Report 6543747-3 (Version None)
Quarter: 2010Q1

REPORT INFORMATION
  Report Type: 
  Country: None (occurrence: None)
  Receive Date: 20100119
  Receipt Date: 20100119
  Transmission Date: 20100710
  Serious: Yes (Disabling)
  Sender: FDA-Public Use
  Company Number: None

PATIENT
  Sex: Female
  Weight: 78.2 kg

DRUGS (1)
  1. ZICAM NO-DRIP LIQUID NASAL GEL/INTENSE/SINUS RELI [Suspect]
     Indication: NASOPHARYNGITIS
     Dates: start: 20090301

REACTIONS (2)
  - AGEUSIA [None]
  - ANOSMIA [None]
